FAERS Safety Report 5332216-4 (Version None)
Quarter: 2007Q2

REPORT INFORMATION
  Report Type: 
  Country: None (occurrence: None)
  Receive Date: 20070306
  Receipt Date: 20060320
  Transmission Date: 20071010
  Serious: Yes (Other)
  Sender: FDA-Public Use
  Company Number: A03200601581

PATIENT
  Sex: Female

DRUGS (5)
  1. PLAVIX [Suspect]
     Dosage: ORAL
     Route: 048
  2. ACYETLSALICYLIC ACID [Concomitant]
  3. PAROXETINE HYDROCHLORIDE [Concomitant]
  4. TOPIRAMATE [Concomitant]
  5. ALPRAZOLAM [Concomitant]

REACTIONS (2)
  - ANGIOEDEMA [None]
  - CHEST DISCOMFORT [None]
